FAERS Safety Report 21873757 (Version 1)
Quarter: 2023Q1

REPORT INFORMATION
  Report Type: Spontaneous
  Country: US (occurrence: None)
  Receive Date: 20230116
  Receipt Date: 20230116
  Transmission Date: 20230417
  Serious: Yes (Life-Threatening)
  Sender: FDA-Public Use
  Company Number: None

PATIENT
  Age: 72 Year
  Sex: Female
  Weight: 63.45 kg

DRUGS (1)
  1. REMICADE [Suspect]
     Active Substance: INFLIXIMAB
     Indication: Psoriatic arthropathy
     Dosage: OTHER FREQUENCY : 6 WK INF 3RD DOSE;?
     Route: 042
     Dates: start: 20221012, end: 20230113

REACTIONS (3)
  - Rash [None]
  - Hypoaesthesia oral [None]
  - Hypoaesthesia oral [None]

NARRATIVE: CASE EVENT DATE: 20230113
